FAERS Safety Report 21846761 (Version 1)
Quarter: 2023Q1

REPORT INFORMATION
  Report Type: Report from Study
  Country: US (occurrence: US)
  Receive Date: 20230111
  Receipt Date: 20230111
  Transmission Date: 20230418
  Serious: No
  Sender: FDA-Public Use
  Company Number: US-ABBVIE-4234365

PATIENT
  Age: 35 Year
  Sex: Male

DRUGS (3)
  1. HUMIRA [Suspect]
     Active Substance: ADALIMUMAB
     Indication: Colitis ulcerative
     Dosage: CITRATE FREE?FORM STRENGTH: 40 MG
     Route: 058
  2. Pfizer/BioNTech [Concomitant]
     Indication: COVID-19 immunisation
     Dosage: TIME INTERVAL: TOTAL
     Route: 062
  3. Pfizer/BioNTech [Concomitant]
     Indication: COVID-19 immunisation
     Dosage: TIME INTERVAL: TOTAL: COVID BOOSTER VACCINE
     Route: 062

REACTIONS (3)
  - Inflammation [Not Recovered/Not Resolved]
  - Abdominal pain upper [Not Recovered/Not Resolved]
  - Frequent bowel movements [Recovered/Resolved]

NARRATIVE: CASE EVENT DATE: 20221201
